FAERS Safety Report 8300610-5 (Version None)
Quarter: 2012Q2

REPORT INFORMATION
  Report Type: 
  Country: None (occurrence: None)
  Receive Date: 20120420
  Receipt Date: 20120409
  Transmission Date: 20120825
  Serious: Yes (Hospitalization, Other)
  Sender: FDA-Public Use
  Company Number: PHEH2012US006916

PATIENT
  Sex: Female

DRUGS (13)
  1. CARISOPRODOL [Concomitant]
     Dosage: 350 MG, QHS
  2. FLUOXETINE [Concomitant]
     Dosage: 20 MG, DAILY
  3. ASPIRIN [Concomitant]
     Dosage: 81 MG, QD
  4. BACTRIM DS [Concomitant]
     Dosage: 1 DF, Q12H
  5. COUMADIN [Concomitant]
     Dosage: 2 MG, DAILY
  6. CALCIUM WITH VITAMIN D [Concomitant]
     Dosage: 1 DF, BID
  7. LASIX [Concomitant]
     Dosage: 40 MG, DAILY
  8. VITAMIN D [Concomitant]
     Dosage: 1000 U, DAILY
  9. GILENYA [Suspect]
     Indication: MULTIPLE SCLEROSIS
     Dosage: 0.5 MG, QD
     Route: 048
  10. ALENDRONATE SODIUM [Concomitant]
     Dosage: 70 MG, QW
  11. BACLOFEN [Concomitant]
     Indication: PAIN
  12. LEVOTHYROXINE SODIUM [Concomitant]
     Dosage: 50 UG, DAILY
  13. SENOKOT [Concomitant]
     Indication: CONSTIPATION
     Dosage: 2 DF, QHS

REACTIONS (26)
  - DILATATION VENTRICULAR [None]
  - DYSPNOEA [None]
  - CARDIAC MURMUR [None]
  - RIGHT VENTRICULAR DYSFUNCTION [None]
  - LEFT VENTRICULAR DYSFUNCTION [None]
  - PERICARDIAL EFFUSION [None]
  - CITROBACTER INFECTION [None]
  - BLOOD PHOSPHORUS DECREASED [None]
  - COR PULMONALE ACUTE [None]
  - MORGANELLA INFECTION [None]
  - PULMONARY HYPERTENSION [None]
  - URINARY TRACT INFECTION [None]
  - PROTHROMBIN TIME PROLONGED [None]
  - ASTHENIA [None]
  - RIGHT VENTRICULAR FAILURE [None]
  - CARDIAC SEPTAL DEFECT [None]
  - MITRAL VALVE DISEASE [None]
  - OEDEMA PERIPHERAL [None]
  - TRICUSPID VALVE INCOMPETENCE [None]
  - MITRAL VALVE INCOMPETENCE [None]
  - PYREXIA [None]
  - ACUTE RESPIRATORY FAILURE [None]
  - CONVULSION [None]
  - LEFT VENTRICULAR HYPERTROPHY [None]
  - RIGHT VENTRICULAR SYSTOLIC PRESSURE INCREASED [None]
  - BREATH SOUNDS ABNORMAL [None]
